FAERS Safety Report 8303564-0 (Version None)
Quarter: 2012Q2

REPORT INFORMATION
  Report Type: 
  Country: None (occurrence: None)
  Receive Date: 20120423
  Receipt Date: 20120412
  Transmission Date: 20120825
  Serious: Yes (Hospitalization, Other)
  Sender: FDA-Public Use
  Company Number: US-BAYER-2012-002896

PATIENT
  Age: 21 Year
  Sex: Female
  Weight: 74.83 kg

DRUGS (8)
  1. REGLAN [Concomitant]
     Dosage: UNK
     Dates: start: 20091001
  2. PHENERGAN HCL [Concomitant]
     Dosage: UNK
     Dates: start: 20091001
  3. YASMIN [Suspect]
     Indication: CONTRACEPTION
     Dosage: UNK
     Route: 048
     Dates: start: 20040101, end: 20080101
  4. YAZ [Suspect]
     Indication: CONTRACEPTION
     Dosage: UNK
     Route: 048
     Dates: start: 20080101, end: 20090101
  5. YAZ [Suspect]
     Indication: PREMENSTRUAL SYNDROME
  6. YASMIN [Suspect]
     Indication: PREMENSTRUAL SYNDROME
  7. NAPROSYN [Concomitant]
     Dosage: UNK
     Dates: start: 20091001
  8. TYLOX [Concomitant]
     Dosage: UNK
     Dates: start: 20091001

REACTIONS (3)
  - PORTAL VEIN THROMBOSIS [None]
  - MESENTERIC VEIN THROMBOSIS [None]
  - PAIN [None]
